FAERS Safety Report 7039026-0 (Version None)
Quarter: 2010Q4

REPORT INFORMATION
  Report Type: 
  Country: None (occurrence: None)
  Receive Date: 20101012
  Receipt Date: 20101004
  Transmission Date: 20110411
  Serious: Yes (Other)
  Sender: FDA-Public Use
  Company Number: US-ELI_LILLY_AND_COMPANY-US201010001050

PATIENT
  Sex: Female

DRUGS (7)
  1. FORTEO [Suspect]
     Indication: OSTEOPOROSIS
     Dosage: 20 UG, DAILY (1/D)
     Route: 065
     Dates: start: 20090902
  2. LISINOPRIL [Concomitant]
     Dosage: 2.5 MG, EACH EVENING
     Route: 065
  3. CALCIUM [Concomitant]
  4. VITAMIN D [Concomitant]
  5. ASPIRIN [Concomitant]
     Dosage: 325 MG, DAILY (1/D)
     Route: 065
  6. SYNTHROID [Concomitant]
     Dosage: 100 MG, UNKNOWN
     Route: 065
  7. LASIX [Concomitant]
     Dosage: 40 MG, UNKNOWN
     Route: 065

REACTIONS (1)
  - SQUAMOUS CELL CARCINOMA [None]
